FAERS Safety Report 4310219-6 (Version None)
Quarter: 2004Q1

REPORT INFORMATION
  Report Type: 
  Country: None (occurrence: None)
  Receive Date: 20040301
  Receipt Date: 20040301
  Transmission Date: 20041129
  Serious: Yes (Life-Threatening, Hospitalization)
  Sender: FDA-Public Use
  Company Number: None

PATIENT
  Sex: Female

DRUGS (1)
  1. DEFINITY [Suspect]
     Indication: MITRAL VALVE STENOSIS
     Dosage: 3 ML ONCE INTRAVENOUS
     Route: 042
     Dates: start: 20040224, end: 20040224

REACTIONS (1)
  - APNOEA [None]
